FAERS Safety Report 8082489-2 (Version None)
Quarter: 2012Q1

REPORT INFORMATION
  Report Type: 
  Country: None (occurrence: None)
  Receive Date: 20120127
  Receipt Date: 20110221
  Transmission Date: 20120608
  Serious: No
  Sender: FDA-Public Use
  Company Number: US-ABBOTT-11P-163-0706622-00

PATIENT
  Age: 30 Year
  Sex: Male

DRUGS (3)
  1. TERBINAFINE HCL [Concomitant]
     Indication: FUNGAL INFECTION
     Dosage: 250MG DAILY FOR TWO WEEKS
  2. UNKNOWN MEDICAITON FOR FUNGAL INFECTION [Concomitant]
     Indication: FUNGAL INFECTION
  3. HUMIRA [Suspect]
     Indication: PSORIASIS
     Dates: start: 20101119

REACTIONS (4)
  - PRODUCTIVE COUGH [None]
  - OROPHARYNGEAL PAIN [None]
  - SPUTUM DISCOLOURED [None]
  - FUNGAL INFECTION [None]
